FAERS Safety Report 9909117 (Version 1)
Quarter: 2014Q1

REPORT INFORMATION
  Report Type: Report from Study
  Country: GB (occurrence: GB)
  Receive Date: 20140219
  Receipt Date: 20140219
  Transmission Date: 20141002
  Serious: Yes (Hospitalization)
  Sender: FDA-Public Use
  Company Number: GB-PFIZER INC-2014045732

PATIENT
  Age: 68 Year
  Sex: Female
  Weight: 57.2 kg

DRUGS (9)
  1. SUNITINIB MALATE [Suspect]
     Indication: INTRAOCULAR MELANOMA
     Dosage: 25 MG, UNK
     Route: 048
     Dates: start: 20120529
  2. LISINOPRIL [Suspect]
     Dosage: 20 MG, 1X/DAY
     Route: 048
     Dates: start: 20140203
  3. BENDROFLUMETHIAZIDE [Suspect]
     Dosage: 2.5 MG, UNK
     Dates: start: 20140203
  4. METOCLOPRAMIDE [Concomitant]
     Dosage: 10 MG, 3X/DAY
     Route: 048
     Dates: start: 20140203
  5. METFORMIN HYDROCHLORIDE [Concomitant]
     Dosage: 500 MG, 1X/DAY
     Route: 048
     Dates: start: 20140203
  6. LEVOTHYROXINE SODIUM [Concomitant]
     Dosage: 75 UG, 1X/DAY
     Route: 048
     Dates: start: 20140203
  7. ENOXAPARIN [Concomitant]
     Dosage: 40 MG, 1X/DAY
     Route: 058
     Dates: start: 20140214
  8. AMITRIPTYLINE [Concomitant]
     Dosage: 75 MG AT NIGHT
     Route: 048
     Dates: start: 20140212
  9. LACTULOSE [Concomitant]
     Dosage: UNK
     Dates: start: 20140214

REACTIONS (2)
  - Abdominal pain upper [Not Recovered/Not Resolved]
  - Dehydration [Not Recovered/Not Resolved]
